FAERS Safety Report 5486801-X (Version None)
Quarter: 2007Q4

REPORT INFORMATION
  Report Type: 
  Country: None (occurrence: None)
  Receive Date: 20071016
  Receipt Date: 20071005
  Transmission Date: 20080405
  Serious: Yes (Death, Hospitalization, Other)
  Sender: FDA-Public Use
  Company Number: US-AVENTIS-200717072US

PATIENT
  Sex: Female
  Weight: 41 kg

DRUGS (1)
  1. LOVENOX [Suspect]
     Route: 051
     Dates: start: 20070902

REACTIONS (7)
  - ABDOMINAL PAIN [None]
  - COMA [None]
  - DEATH [None]
  - HAEMATOCRIT DECREASED [None]
  - HAEMOGLOBIN DECREASED [None]
  - HAEMORRHAGE INTRACRANIAL [None]
  - RETCHING [None]
